FAERS Safety Report 20761327 (Version 2)
Quarter: 2022Q3

REPORT INFORMATION
  Report Type: Report from Study
  Country: US (occurrence: US)
  Receive Date: 20220428
  Receipt Date: 20220707
  Transmission Date: 20221027
  Serious: Yes (Hospitalization)
  Sender: FDA-Public Use
  Company Number: US-GILEAD-2022-0578577

PATIENT
  Age: 22 Year
  Sex: Male

DRUGS (13)
  1. AZTREONAM LYSINE [Suspect]
     Active Substance: AZTREONAM LYSINE
     Indication: Cystic fibrosis
     Dosage: 75 MG, TID FOR 28 DAYS ON/28 DAYS OFF
     Route: 055
     Dates: start: 202203
  2. PHYTONADIONE [Concomitant]
     Active Substance: PHYTONADIONE
  3. LAMOTRIGINE [Concomitant]
     Active Substance: LAMOTRIGINE
  4. VITAMIN D3 [Concomitant]
     Active Substance: CHOLECALCIFEROL
  5. CLONIDINE [Concomitant]
     Active Substance: CLONIDINE
  6. ARIPIPRAZOLE [Concomitant]
     Active Substance: ARIPIPRAZOLE
  7. OMEPRAZOLE [Concomitant]
     Active Substance: OMEPRAZOLE
  8. TRAZODONE [Concomitant]
     Active Substance: TRAZODONE HYDROCHLORIDE
  9. CREON [Concomitant]
     Active Substance: PANCRELIPASE AMYLASE\PANCRELIPASE LIPASE\PANCRELIPASE PROTEASE
  10. ALBUTEROL [Concomitant]
     Active Substance: ALBUTEROL
  11. CELEXA [Concomitant]
     Active Substance: CITALOPRAM HYDROBROMIDE
  12. FLUTICASONE [Concomitant]
     Active Substance: FLUTICASONE
  13. PULMOZYME [Concomitant]
     Active Substance: DORNASE ALFA

REACTIONS (1)
  - COVID-19 [Not Recovered/Not Resolved]
